FAERS Safety Report 6525305-X (Version None)
Quarter: 2010Q1

REPORT INFORMATION
  Report Type: 
  Country: None (occurrence: None)
  Receive Date: 20100104
  Receipt Date: 20091222
  Transmission Date: 20100710
  Serious: Yes (Life-Threatening, Hospitalization)
  Sender: FDA-Public Use
  Company Number: MX-ELI_LILLY_AND_COMPANY-MX200907003931

PATIENT
  Age: 47 Year
  Sex: Female

DRUGS (4)
  1. CYMBALTA [Suspect]
     Indication: MAJOR DEPRESSION
     Dosage: 60 MG, UNKNOWN
     Route: 048
     Dates: start: 20090701
  2. DICLOFENAC SODIUM [Concomitant]
     Dosage: UNK, UNKNOWN
     Route: 065
  3. METHOTREXATE [Concomitant]
     Dosage: UNK, UNKNOWN
     Route: 065
  4. CISAPRIDE [Concomitant]
     Dosage: UNK, UNKNOWN
     Route: 065

REACTIONS (2)
  - DRUG HYPERSENSITIVITY [None]
  - THROAT TIGHTNESS [None]
